FAERS Safety Report 11723642 (Version 2)
Quarter: 2015Q4

REPORT INFORMATION
  Report Type: Spontaneous
  Country: None (occurrence: US)
  Receive Date: 20151111
  Receipt Date: 20151120
  Transmission Date: 20160304
  Serious: No
  Sender: FDA-Public Use
  Company Number: US-MATRIXX INITIATIVES, INC.-1044068

PATIENT
  Age: 33 Year
  Sex: Female

DRUGS (1)
  1. ZICAM COLD REMEDY RAPIDMELTS [Suspect]
     Active Substance: ZINC ACETATE ANHYDROUS\ZINC GLUCONATE
     Indication: NASOPHARYNGITIS
     Route: 048

REACTIONS (6)
  - Glossitis [None]
  - Dysgeusia [None]
  - Ageusia [Recovering/Resolving]
  - Swollen tongue [None]
  - Anosmia [Recovering/Resolving]
  - Tongue disorder [None]
